FAERS Safety Report 22077617 (Version 7)
Quarter: 2023Q2

REPORT INFORMATION
  Report Type: Report from Study
  Country: TW (occurrence: TW)
  Receive Date: 20230309
  Receipt Date: 20230601
  Transmission Date: 20230722
  Serious: Yes (Hospitalization, Disabling)
  Sender: FDA-Public Use
  Company Number: TW-BIOGEN-2023BI01192078

PATIENT
  Age: 48 Year
  Sex: Male
  Weight: 53 kg

DRUGS (15)
  1. TYSABRI [Suspect]
     Active Substance: NATALIZUMAB
     Indication: Multiple sclerosis
     Route: 050
     Dates: start: 20220909, end: 20230206
  2. NaCl with glucose [Concomitant]
     Indication: Product used for unknown indication
     Dosage: NACL 0.225 PERCENT WITH GLUCOSE 5 PERCENT (IVF); 1PC ONCE 1PC
     Route: 050
  3. CEFAZOLIN SODIUM [Concomitant]
     Active Substance: CEFAZOLIN SODIUM
     Indication: Product used for unknown indication
     Dosage: 1GM/VIAL(TO OR) 1PC ONCE 1PC
     Route: 050
  4. URSODIOL [Concomitant]
     Active Substance: URSODIOL
     Indication: Product used for unknown indication
     Route: 050
  5. Ferrous gluconate B +Vit B1 +Vit C [Concomitant]
     Indication: Product used for unknown indication
     Dosage: FERROUS GLUCONATE B 300MG+VIT B1 10MG+VIT C 30MG)/ 1PC
     Route: 050
  6. ACETYLCYSTEINE [Concomitant]
     Active Substance: ACETYLCYSTEINE
     Indication: Product used for unknown indication
     Dosage: 1PC
     Route: 050
  7. KETOCONAZOLE [Concomitant]
     Active Substance: KETOCONAZOLE
     Indication: Product used for unknown indication
     Dosage: CREAM 2%,10GM /TUBE QS FOR BILATERAL GROINS
     Route: 050
  8. PREDNISOLONE [Concomitant]
     Active Substance: PREDNISOLONE
     Indication: Product used for unknown indication
     Dosage: 5MG/TAB 10PC
     Route: 050
  9. LEVOTHYROXINE SODIUM [Concomitant]
     Active Substance: LEVOTHYROXINE SODIUM
     Indication: Product used for unknown indication
     Dosage: 0.05MG/TAB (ELTROXIN,ASPEN) 1PC
     Route: 050
  10. FAMOTIDINE [Concomitant]
     Active Substance: FAMOTIDINE
     Indication: Product used for unknown indication
     Dosage: 20MG/TAB 1PC
     Route: 050
  11. Tamsulosin D [Concomitant]
     Indication: Product used for unknown indication
     Dosage: 0.2MG/TAB, 1PC
     Route: 050
  12. Dioctahedral smectite (diosmectite) [Concomitant]
     Indication: Diarrhoea
     Dosage: SACHET/PRN DIARRHEA
     Route: 050
  13. Dioctahedral smectite (diosmectite) [Concomitant]
     Dosage: (PRN, Q6H IF DIARRHEA GREATER THAN 3) 1PK IRRE
     Route: 050
  14. Bethanechol HCl [Concomitant]
     Indication: Product used for unknown indication
     Dosage: 0.2MG/TAB, 1PC
     Route: 050
  15. Bethanechol HCl [Concomitant]
     Dosage: 1PC TID
     Route: 050

REACTIONS (11)
  - Pneumonia aspiration [Not Recovered/Not Resolved]
  - Asthenia [Unknown]
  - Balance disorder [Unknown]
  - Multiple sclerosis relapse [Not Recovered/Not Resolved]
  - Hypothyroidism [Unknown]
  - Microcytic anaemia [Unknown]
  - Inflammation [Unknown]
  - Thalassaemia [Unknown]
  - Hypokalaemia [Unknown]
  - Seborrhoeic dermatitis [Unknown]
  - Skin candida [Unknown]

NARRATIVE: CASE EVENT DATE: 20230214
